FAERS Safety Report 6663026-3 (Version None)
Quarter: 2010Q2

REPORT INFORMATION
  Report Type: 
  Country: None (occurrence: None)
  Receive Date: 20100401
  Receipt Date: 20100330
  Transmission Date: 20101027
  Serious: Yes (Hospitalization)
  Sender: FDA-Public Use
  Company Number: FR-ROXANE LABORATORIES, INC.-2010-RO-00358RO

PATIENT
  Age: 70 Year
  Sex: Female

DRUGS (4)
  1. PREDNISONE [Suspect]
     Indication: PEMPHIGUS
  2. VITAMIN-CALCIUM [Concomitant]
     Indication: SUPPLEMENTATION THERAPY
  3. POTASSIUM [Concomitant]
     Indication: MINERAL SUPPLEMENTATION
  4. AMOXICILLIN AND CLAVUNLANIC ACID [Concomitant]
     Indication: TYPHOID FEVER

REACTIONS (2)
  - RETROPERITONEAL ABSCESS [None]
  - TYPHOID FEVER [None]
